FAERS Safety Report 5771928-5 (Version None)
Quarter: 2008Q2

REPORT INFORMATION
  Report Type: 
  Country: None (occurrence: None)
  Receive Date: 20080528
  Receipt Date: 20080513
  Transmission Date: 20081010
  Serious: Yes (Death, Life-Threatening, Other)
  Sender: FDA-Public Use
  Company Number: THYM-1000698

PATIENT
  Age: 81 Year
  Sex: Female
  Weight: 60 kg

DRUGS (4)
  1. THYMOGLOBULIN [Suspect]
     Indication: APLASTIC ANAEMIA
     Dosage: 100 MG, ONCE, INTRAVENOUS; 175 MG, ONCE, INTRAVENOUS
     Route: 042
     Dates: start: 20080417, end: 20080417
  2. THYMOGLOBULIN [Suspect]
     Indication: APLASTIC ANAEMIA
     Dosage: 100 MG, ONCE, INTRAVENOUS; 175 MG, ONCE, INTRAVENOUS
     Route: 042
     Dates: start: 20080424, end: 20080425
  3. SOLU-DECORTIN-H (PREDNISOLONE SODIUM SUCCINATE) [Concomitant]
  4. CYCLOSPORINE [Concomitant]

REACTIONS (7)
  - BRAIN CONTUSION [None]
  - CEREBRAL HAEMORRHAGE [None]
  - COMA [None]
  - CONDITION AGGRAVATED [None]
  - FALL [None]
  - THROMBOCYTOPENIA [None]
  - URINARY BLADDER HAEMORRHAGE [None]
